FAERS Safety Report 6994107-2 (Version None)
Quarter: 2010Q3

REPORT INFORMATION
  Report Type: 
  Country: None (occurrence: None)
  Receive Date: 20100917
  Receipt Date: 20091202
  Transmission Date: 20110219
  Serious: No
  Sender: FDA-Public Use
  Company Number: US-ASTRAZENECA-2009SE29743

PATIENT
  Age: 32 Year
  Sex: Female

DRUGS (9)
  1. QUETIAPINE [Suspect]
     Indication: ANXIETY DISORDER
  2. ATAZANAVIR [Interacting]
     Indication: ANTIRETROVIRAL THERAPY
  3. RITONAVIR [Interacting]
     Indication: ANTIRETROVIRAL THERAPY
  4. CITALOPRAM HYDROBROMIDE [Concomitant]
     Indication: ANXIETY DISORDER
  5. CLONAZEPAM [Concomitant]
     Indication: ANXIETY DISORDER
  6. METHADONE [Concomitant]
     Indication: INCREASED APPETITE
  7. DRONABINOL [Concomitant]
     Indication: INCREASED APPETITE
  8. EMTRICITABINE [Concomitant]
     Indication: ANTIRETROVIRAL THERAPY
     Dosage: 200 MG DAILY
  9. TENOFOVIR [Concomitant]
     Indication: ANTIRETROVIRAL THERAPY
     Dosage: 300 MG DAILY

REACTIONS (3)
  - CONFUSIONAL STATE [None]
  - DRUG INTERACTION [None]
  - SEDATION [None]
